FAERS Safety Report 5641263-4 (Version None)
Quarter: 2008Q1

REPORT INFORMATION
  Report Type: 
  Country: None (occurrence: None)
  Receive Date: 20080227
  Receipt Date: 20070418
  Transmission Date: 20080703
  Serious: No
  Sender: FDA-Public Use
  Company Number: A0647553A

PATIENT
  Sex: Female

DRUGS (3)
  1. NICORETTE [Suspect]
  2. NICORETTE [Suspect]
  3. NICODERM CQ [Suspect]

REACTIONS (6)
  - APPLICATION SITE RASH [None]
  - APPLICATION SITE SCAR [None]
  - APPLICATION SITE VESICLES [None]
  - MIGRAINE [None]
  - PAIN IN JAW [None]
  - PHARMACEUTICAL PRODUCT COMPLAINT [None]
